FAERS Safety Report 8982984 (Version 1)
Quarter: 2012Q4

REPORT INFORMATION
  Report Type: 
  Country: US (occurrence: US)
  Receive Date: 20121224
  Receipt Date: 20121224
  Transmission Date: 20130627
  Serious: Yes (Other)
  Sender: FDA-Public Use
  Company Number: US-PURDUE-USA-2012-0097080

PATIENT
  Sex: Female

DRUGS (1)
  1. BUTRANS [Suspect]
     Indication: BACK PAIN
     Dosage: 10 mcg/hr, UNK
     Route: 062
     Dates: start: 20121216

REACTIONS (7)
  - Throat tightness [Not Recovered/Not Resolved]
  - Swollen tongue [Unknown]
  - Tongue paralysis [Unknown]
  - Dyspnoea [Not Recovered/Not Resolved]
  - Nausea [Unknown]
  - Dizziness [Not Recovered/Not Resolved]
  - Sedation [Not Recovered/Not Resolved]
